FAERS Safety Report 5337759-5 (Version None)
Quarter: 2007Q2

REPORT INFORMATION
  Report Type: 
  Country: None (occurrence: None)
  Receive Date: 20070308
  Receipt Date: 20070111
  Transmission Date: 20071010
  Serious: No
  Sender: FDA-Public Use
  Company Number: 2006-BP-14893BP

PATIENT
  Sex: Male

DRUGS (4)
  1. SPIRIVA [Suspect]
     Indication: LUNG DISORDER
     Dosage: 18 MCG (18 MCG, 1 IN 1 D), IH
     Route: 055
     Dates: start: 20061114, end: 20061220
  2. BENICAR [Concomitant]
  3. VERAPAMIL [Concomitant]
  4. ALBUTEROL [Concomitant]

REACTIONS (2)
  - MICTURITION URGENCY [None]
  - URINE OUTPUT DECREASED [None]
